FAERS Safety Report 19193963 (Version 1)
Quarter: 2021Q2

REPORT INFORMATION
  Report Type: Spontaneous
  Country: CA (occurrence: CA)
  Receive Date: 20210429
  Receipt Date: 20210429
  Transmission Date: 20210717
  Serious: Yes (Other)
  Sender: FDA-Public Use
  Company Number: CA-TEVA-2021-CA-1905239

PATIENT
  Age: 60 Year
  Sex: Male

DRUGS (2)
  1. CARBAMAZEPINE. [Suspect]
     Active Substance: CARBAMAZEPINE
     Dosage: 200 MILLIGRAM DAILY;
     Route: 065
  2. CARBAMAZEPINE. [Suspect]
     Active Substance: CARBAMAZEPINE
     Indication: COUGH
     Dosage: 400 UNKNOWN DAILY;
     Route: 065

REACTIONS (3)
  - Affect lability [Recovered/Resolved]
  - Suicidal ideation [Recovered/Resolved]
  - Blunted affect [Recovered/Resolved]
